FAERS Safety Report 7373901-2 (Version None)
Quarter: 2011Q1

REPORT INFORMATION
  Report Type: 
  Country: None (occurrence: None)
  Receive Date: 20110325
  Receipt Date: 20110225
  Transmission Date: 20110831
  Serious: No
  Sender: FDA-Public Use
  Company Number: US-B.I. PHARMACEUTICALS,INC./RIDGEFIELD-2011-BP-06927BP

PATIENT
  Age: 56 Year
  Sex: Female

DRUGS (8)
  1. LEVAQUIN [Concomitant]
     Indication: URINARY TRACT INFECTION
     Dosage: 500 MG
     Route: 048
     Dates: start: 20110222, end: 20110224
  2. METOPROLOL [Concomitant]
     Indication: HYPERTENSION
     Dosage: 100 MG
     Route: 048
     Dates: start: 20070101
  3. LASIX [Concomitant]
     Indication: SWELLING
     Route: 048
     Dates: start: 20100101
  4. PRADAXA [Suspect]
     Indication: ATRIAL FIBRILLATION
     Dosage: 300 MG
     Route: 048
     Dates: start: 20110209
  5. DIOVAN [Concomitant]
     Indication: HYPERTENSION
     Dosage: 160 MG
     Route: 048
     Dates: start: 20110218
  6. POTASSIUM CHLORIDE [Concomitant]
     Indication: SWELLING
     Route: 048
     Dates: start: 20100101
  7. DIGOXIN [Concomitant]
     Indication: CARDIAC DISORDER
     Dosage: 0.25 MG
     Route: 048
     Dates: start: 20060101
  8. ALLEGRA [Concomitant]
     Indication: HYPERSENSITIVITY
     Dosage: 180 MG
     Route: 048
     Dates: start: 20060101

REACTIONS (2)
  - ABDOMINAL DISCOMFORT [None]
  - FREQUENT BOWEL MOVEMENTS [None]
